FAERS Safety Report 13675393 (Version 1)
Quarter: 2017Q2

REPORT INFORMATION
  Report Type: Spontaneous
  Country: FR (occurrence: FR)
  Receive Date: 20170621
  Receipt Date: 20170621
  Transmission Date: 20170830
  Serious: Yes (Other)
  Sender: FDA-Public Use
  Company Number: FR-BAYER-2017-117785

PATIENT
  Age: 40 Year
  Sex: Female

DRUGS (1)
  1. MIRENA [Suspect]
     Active Substance: LEVONORGESTREL
     Indication: CONTRACEPTION
     Dosage: 20 MCG/24HR, CONT
     Route: 015
     Dates: start: 20150619, end: 20170411

REACTIONS (15)
  - Arthralgia [Recovering/Resolving]
  - Depression [Recovering/Resolving]
  - Alopecia [Recovering/Resolving]
  - Visual impairment [Recovering/Resolving]
  - Migraine [Recovering/Resolving]
  - Back pain [Recovering/Resolving]
  - Weight increased [Recovering/Resolving]
  - Vaginal discharge [Recovering/Resolving]
  - Irritability [Recovering/Resolving]
  - Vulvovaginal mycotic infection [Recovering/Resolving]
  - Fluid retention [Recovering/Resolving]
  - Fatigue [Recovering/Resolving]
  - Paraesthesia [Recovering/Resolving]
  - Myalgia [Recovering/Resolving]
  - Breast pain [Recovering/Resolving]

NARRATIVE: CASE EVENT DATE: 201507
